FAERS Safety Report 6442421-1 (Version None)
Quarter: 2009Q4

REPORT INFORMATION
  Report Type: 
  Country: None (occurrence: None)
  Receive Date: 20091112
  Receipt Date: 20091105
  Transmission Date: 20100525
  Serious: Yes (Life-Threatening)
  Sender: FDA-Public Use
  Company Number: 2009JP006649

PATIENT
  Age: 60 Year
  Sex: Female

DRUGS (1)
  1. FUNGUARD (MICAFUNGIN) INJECTION [Suspect]
     Indication: FUNGAL INFECTION
     Dosage: IV DRIP
     Route: 041
     Dates: start: 20091104, end: 20091104

REACTIONS (3)
  - ACUTE RESPIRATORY DISTRESS SYNDROME [None]
  - INFUSION RELATED REACTION [None]
  - SHOCK [None]
